FAERS Safety Report 4784296-2 (Version None)
Quarter: 2005Q3

REPORT INFORMATION
  Report Type: 
  Country: None (occurrence: None)
  Receive Date: 20050928
  Receipt Date: 20050916
  Transmission Date: 20060218
  Serious: Yes (Hospitalization)
  Sender: FDA-Public Use
  Company Number: 2005BI005669

PATIENT
  Age: 65 Year
  Sex: Female

DRUGS (1)
  1. AVONEX [Suspect]
     Indication: MULTIPLE SCLEROSIS
     Dosage: 30 UG; QW; IM
     Route: 030

REACTIONS (8)
  - ASTHENIA [None]
  - DIARRHOEA [None]
  - HYPERSOMNIA [None]
  - PULMONARY OEDEMA [None]
  - RESPIRATORY DISORDER [None]
  - RETCHING [None]
  - URINARY TRACT INFECTION [None]
  - VOMITING [None]
